FAERS Safety Report 5676978-5 (Version None)
Quarter: 2008Q1

REPORT INFORMATION
  Report Type: 
  Country: None (occurrence: None)
  Receive Date: 20080324
  Receipt Date: 20080310
  Transmission Date: 20080703
  Serious: Yes (Other)
  Sender: FDA-Public Use
  Company Number: US-BAYER-200811008BCC

PATIENT
  Sex: Male

DRUGS (2)
  1. ASPIRIN [Suspect]
     Indication: CARDIOVASCULAR EVENT PROPHYLAXIS
     Dosage: TOTAL DAILY DOSE: 81 MG  UNIT DOSE: 81 MG
     Route: 048
  2. ASPIRIN [Suspect]
     Route: 048

REACTIONS (3)
  - EROSIVE OESOPHAGITIS [None]
  - RED BLOOD CELL COUNT DECREASED [None]
  - THROMBOSIS [None]
